FAERS Safety Report 5354386-4 (Version None)
Quarter: 2007Q2

REPORT INFORMATION
  Report Type: 
  Country: None (occurrence: None)
  Receive Date: 20070612
  Receipt Date: 20070601
  Transmission Date: 20071010
  Serious: Yes (Other)
  Sender: FDA-Public Use
  Company Number: US-JNJFOC-20070601754

PATIENT
  Sex: Female
  Weight: 63.5 kg

DRUGS (7)
  1. FENTANYL TRANSDERMAL SYSTEM [Suspect]
     Indication: BACK DISORDER
     Route: 062
  2. LYRICA [Concomitant]
     Indication: NERVE BLOCK
     Route: 048
  3. CYMBALTA [Concomitant]
     Indication: DEPRESSION
     Route: 048
  4. CYMBALTA [Concomitant]
     Indication: PAIN
     Route: 048
  5. TOPROL-XL [Concomitant]
     Indication: HYPERTENSION
     Dosage: EVERY NIGHT
     Route: 048
  6. VASOTEC [Concomitant]
     Dosage: 10 MG, EVERY NIGHT
     Route: 048
  7. PREMPRO [Concomitant]
     Indication: MENOPAUSE
     Dosage: 0.3MG/1.5MG
     Route: 048

REACTIONS (2)
  - BLOOD PRESSURE INCREASED [None]
  - WRONG TECHNIQUE IN DRUG USAGE PROCESS [None]
